FAERS Safety Report 5606002-1 (Version None)
Quarter: 2008Q1

REPORT INFORMATION
  Report Type: 
  Country: None (occurrence: None)
  Receive Date: 20080129
  Receipt Date: 20080116
  Transmission Date: 20080703
  Serious: Yes (Other)
  Sender: FDA-Public Use
  Company Number: CH-ELI_LILLY_AND_COMPANY-CH200801003132

PATIENT
  Age: 60 Year
  Sex: Male

DRUGS (6)
  1. CIALIS [Suspect]
     Indication: ERECTILE DYSFUNCTION
     Dosage: 20 MG, AS NEEDED
     Route: 048
  2. PLAVIX [Concomitant]
     Indication: CARDIOVASCULAR DISORDER
     Dosage: 75 MG, DAILY (1/D)
     Route: 048
  3. ASPIRIN [Concomitant]
     Indication: CARDIOVASCULAR DISORDER
     Dosage: 100 MG, DAILY (1/D)
     Route: 048
  4. MARCUMAR [Concomitant]
     Indication: CARDIOVASCULAR DISORDER
     Dosage: 1 D/F, 2/D
     Route: 048
  5. LISITRIL [Concomitant]
     Dosage: 5 MG, DAILY (1/D)
     Route: 048
  6. ZURCAL [Concomitant]
     Dosage: 40 MG, DAILY (1/D)
     Route: 048

REACTIONS (1)
  - ATRIAL FIBRILLATION [None]
